FAERS Safety Report 5056213-1 (Version None)
Quarter: 2006Q3

REPORT INFORMATION
  Report Type: 
  Country: None (occurrence: None)
  Receive Date: 20060717
  Receipt Date: 20060706
  Transmission Date: 20061208
  Serious: Yes (Hospitalization)
  Sender: FDA-Public Use
  Company Number: 2006085128

PATIENT
  Age: 72 Year
  Sex: Female

DRUGS (6)
  1. ALPRAZOLAM [Suspect]
     Indication: DRUG USE FOR UNKNOWN INDICATION
     Dosage: 10 MG (10 MG, DAILY), ORAL
     Route: 048
     Dates: end: 20060411
  2. PREDNISONE TAB [Suspect]
     Indication: DRUG USE FOR UNKNOWN INDICATION
     Dosage: 40 MG (20 MG, DAILY); ORAL
     Route: 048
     Dates: start: 20060315, end: 20060411
  3. ALDALIX (SPIRONOLACTONE, FUROSEMIDE) [Suspect]
     Indication: DRUG USE FOR UNKNOWN INDICATION
     Dosage: 50 MG/20 MG (DAILY); ORAL
     Route: 048
     Dates: end: 20060411
  4. LANSOPRAZOLE [Suspect]
     Indication: DRUG USE FOR UNKNOWN INDICATION
     Dosage: 30 MG (30 MG, DAILY) ORAL
     Route: 048
     Dates: end: 20060411
  5. LORAZEPAM [Suspect]
     Indication: DRUG USE FOR UNKNOWN INDICATION
     Dosage: 1 MG (1 MG, DAILY); ORAL
     Route: 048
     Dates: end: 20060411
  6. ALGOTROPYL PROMETHAZINE (PARACETAMOL PROMETHAZINE HYDROCHLORIDE) [Suspect]
     Indication: DRUG USE FOR UNKNOWN INDICATION
     Dosage: 2 DF (DAILY), ORAL
     Route: 048
     Dates: end: 20060411

REACTIONS (5)
  - AGGRESSION [None]
  - CONFUSIONAL STATE [None]
  - DELIRIUM [None]
  - PERSECUTORY DELUSION [None]
  - URINARY RETENTION [None]
